FAERS Safety Report 10236161 (Version 2)
Quarter: 2014Q2

REPORT INFORMATION
  Report Type: Report from Study
  Country: US (occurrence: US)
  Receive Date: 20140613
  Receipt Date: 20140613
  Transmission Date: 20141212
  Serious: Yes (Hospitalization)
  Sender: FDA-Public Use
  Company Number: US-B.I. PHARMACEUTICALS,INC./RIDGEFIELD-2014-BI-22152BI

PATIENT
  Age: 63 Year
  Sex: Female

DRUGS (4)
  1. GILOTRIF [Suspect]
     Indication: NON-SMALL CELL LUNG CANCER
     Dosage: 40 MG
     Route: 048
     Dates: start: 20140517
  2. ANTACID [Concomitant]
     Route: 065
  3. SOTALOL [Concomitant]
     Route: 065
  4. MEGESTROL [Concomitant]
     Route: 065

REACTIONS (6)
  - Atrial fibrillation [Unknown]
  - Pleural effusion [Recovered/Resolved]
  - Nausea [Not Recovered/Not Resolved]
  - Palpitations [Not Recovered/Not Resolved]
  - Decreased appetite [Not Recovered/Not Resolved]
  - Diarrhoea [Recovered/Resolved]
